FAERS Safety Report 9522045 (Version 2)
Quarter: 2013Q3

REPORT INFORMATION
  Report Type: Spontaneous
  Country: RS (occurrence: RS)
  Receive Date: 20130913
  Receipt Date: 20130920
  Transmission Date: 20140515
  Serious: Yes (Death)
  Sender: FDA-Public Use
  Company Number: RS-JNJFOC-20130906151

PATIENT
  Age: 42 Year
  Sex: Male

DRUGS (6)
  1. RISPOLEPT CONSTA [Suspect]
     Indication: SCHIZOPHRENIA
     Route: 030
     Dates: start: 200904
  2. RISPOLEPT CONSTA [Suspect]
     Indication: PSYCHOTIC DISORDER
     Route: 030
     Dates: start: 200904
  3. SODIUM VALPROATE [Concomitant]
     Indication: SCHIZOPHRENIA
     Route: 048
  4. SODIUM VALPROATE [Concomitant]
     Indication: PSYCHOTIC DISORDER
     Route: 048
  5. LORAZEPAM [Concomitant]
     Indication: SCHIZOPHRENIA
     Route: 048
  6. LORAZEPAM [Concomitant]
     Indication: PSYCHOTIC DISORDER
     Route: 048

REACTIONS (1)
  - Death [Fatal]
